FAERS Safety Report 11874478 (Version 1)
Quarter: 2015Q4

REPORT INFORMATION
  Report Type: Spontaneous
  Country: US (occurrence: None)
  Receive Date: 20151228
  Receipt Date: 20151228
  Transmission Date: 20160305
  Serious: Yes (Death)
  Sender: FDA-Public Use
  Company Number: None

PATIENT
  Age: 59 Year
  Sex: Male
  Weight: 97.52 kg

DRUGS (14)
  1. LOESTIN [Concomitant]
  2. BACLOFEN. [Concomitant]
     Active Substance: BACLOFEN
  3. ASPIRIN. [Concomitant]
     Active Substance: ASPIRIN
  4. IBOSORBIDE [Concomitant]
  5. ASINIPRIL [Concomitant]
  6. LISINIPRIL [Concomitant]
  7. FENTAYL TRANSDERMAL PAIN PATCH [Concomitant]
  8. TRIAZODINE [Concomitant]
  9. NIACIN. [Concomitant]
     Active Substance: NIACIN
  10. CYMBALTA [Suspect]
     Active Substance: DULOXETINE HYDROCHLORIDE
     Indication: ARTHRITIS
     Dosage: 1 PILL
     Route: 048
     Dates: start: 20141201, end: 20151207
  11. CYMBALTRA [Concomitant]
  12. COREG [Concomitant]
     Active Substance: CARVEDILOL
  13. XANAX [Concomitant]
     Active Substance: ALPRAZOLAM
  14. FISH OIL [Concomitant]
     Active Substance: FISH OIL

REACTIONS (7)
  - Amnesia [None]
  - Depression [None]
  - Impulsive behaviour [None]
  - Paranoia [None]
  - Anger [None]
  - Suicidal ideation [None]
  - Thinking abnormal [None]

NARRATIVE: CASE EVENT DATE: 20151207
